FAERS Safety Report 17391470 (Version 2)
Quarter: 2020Q1

REPORT INFORMATION
  Report Type: Report from Study
  Country: US (occurrence: US)
  Receive Date: 20200207
  Receipt Date: 20200219
  Transmission Date: 20200409
  Serious: Yes (Death, Hospitalization, Other)
  Sender: FDA-Public Use
  Company Number: US-ACTELION-A-US2020-200638

PATIENT
  Age: 47 Year
  Sex: Female
  Weight: 62.13 kg

DRUGS (4)
  1. OPSUMIT [Suspect]
     Active Substance: MACITENTAN
     Indication: PULMONARY ARTERIAL HYPERTENSION
     Dosage: 10 MG, QD
     Route: 048
  2. ELIQUIS [Concomitant]
     Active Substance: APIXABAN
  3. VELETRI [Suspect]
     Active Substance: EPOPROSTENOL
     Dosage: 40 MG/KG, PER MIN
     Route: 042
     Dates: start: 201912
  4. VELETRI [Suspect]
     Active Substance: EPOPROSTENOL
     Indication: PULMONARY ARTERIAL HYPERTENSION
     Dosage: 35 MG/KG, PER MIN
     Route: 042
     Dates: start: 201912

REACTIONS (11)
  - Weight decreased [Unknown]
  - Headache [Recovering/Resolving]
  - Cardiac failure congestive [Unknown]
  - Dyspnoea [Recovering/Resolving]
  - Nausea [Unknown]
  - Respiratory disorder [Unknown]
  - Fatigue [Unknown]
  - Pain [Recovering/Resolving]
  - Death [Fatal]
  - Pain in jaw [Recovering/Resolving]
  - Hot flush [Recovering/Resolving]

NARRATIVE: CASE EVENT DATE: 20200207
